FAERS Safety Report 9046378 (Version 2)
Quarter: 2013Q1

REPORT INFORMATION
  Report Type: Spontaneous
  Country: US (occurrence: US)
  Receive Date: 20130201
  Receipt Date: 20130321
  Transmission Date: 20140127
  Serious: Yes (Hospitalization)
  Sender: FDA-Public Use
  Company Number: PHEH2013US002764

PATIENT
  Age: 70 None
  Sex: Female

DRUGS (11)
  1. TASIGNA [Suspect]
     Indication: CHRONIC MYELOID LEUKAEMIA
     Dosage: 300 MG, BID
     Route: 048
     Dates: start: 201109
  2. DIGOXIN [Suspect]
     Dosage: 250 MG, UNK
  3. ATORVASTATIN [Concomitant]
     Dosage: 40 MG, UNK
     Route: 048
  4. PANTOPRAZOLE [Concomitant]
     Dosage: 40 MG, QD
     Route: 048
  5. WARFARIN [Concomitant]
     Indication: ATRIAL FIBRILLATION
     Dosage: 7.5 MG
     Route: 048
  6. WARFARIN [Concomitant]
     Dosage: 5 MG
     Route: 048
  7. DONEPEZIL [Concomitant]
     Dosage: 10 MG, UNK
     Route: 048
  8. DILTIAZEM [Concomitant]
     Dosage: 180 MG, BID
     Route: 048
  9. PAROXETINE [Concomitant]
     Dosage: 10 MG, UNK
     Route: 048
  10. VITAMIN E [Concomitant]
     Dosage: 400 U, QD
     Route: 048
  11. ARICEPT [Concomitant]
     Dosage: 10 MG, UNK
     Route: 048

REACTIONS (3)
  - Dementia [Not Recovered/Not Resolved]
  - Fall [Unknown]
  - Cardioactive drug level increased [Unknown]
